FAERS Safety Report 18935271 (Version 3)
Quarter: 2022Q1

REPORT INFORMATION
  Report Type: Report from Study
  Country: US (occurrence: US)
  Receive Date: 20210224
  Receipt Date: 20220214
  Transmission Date: 20220423
  Serious: No
  Sender: FDA-Public Use
  Company Number: US-HRARD-202000920

PATIENT
  Age: 63 Year
  Sex: Female

DRUGS (25)
  1. LYSODREN [Suspect]
     Active Substance: MITOTANE
     Route: 048
     Dates: start: 20200615
  2. LYSODREN [Suspect]
     Active Substance: MITOTANE
     Dosage: 06 TABLETS BID
     Route: 048
     Dates: start: 20201109
  3. LYSODREN [Suspect]
     Active Substance: MITOTANE
     Dosage: 3000 MG BID. ON HOLD ON AN UNSPECIFIED DATE BETWEEN 10 MAR AND 08 APR 2021
     Route: 048
     Dates: start: 20201015, end: 2021
  4. IBUPROFEN [Concomitant]
     Active Substance: IBUPROFEN
  5. METFORMIN [Concomitant]
     Active Substance: METFORMIN HYDROCHLORIDE
  6. Carisoproldol [Concomitant]
  7. HYDROCODONE BITARTRATE AND ACETAMINOPHEN [Concomitant]
     Active Substance: ACETAMINOPHEN\HYDROCODONE BITARTRATE
  8. CEFDINIR [Concomitant]
     Active Substance: CEFDINIR
  9. PROMETHAZINE DM [Concomitant]
     Active Substance: DEXTROMETHORPHAN HYDROBROMIDE\PROMETHAZINE HYDROCHLORIDE
  10. VIRTUSSIN AC [Concomitant]
     Active Substance: CODEINE PHOSPHATE\GUAIFENESIN
  11. LOVASTATIN [Concomitant]
     Active Substance: LOVASTATIN
  12. ALBUTEROL [Concomitant]
     Active Substance: ALBUTEROL
  13. Fluticasone SPR [Concomitant]
  14. MONTELUKAST [Concomitant]
     Active Substance: MONTELUKAST SODIUM
  15. DOK [Concomitant]
     Active Substance: DOCUSATE SODIUM
  16. ONDANSETRON [Concomitant]
     Active Substance: ONDANSETRON
  17. DEXAMETHASONE [Concomitant]
     Active Substance: DEXAMETHASONE
  18. MIRTAZAPINE [Concomitant]
     Active Substance: MIRTAZAPINE
  19. Fludrocort [Concomitant]
  20. PREDNISONE [Concomitant]
     Active Substance: PREDNISONE
  21. DICLOFENAC [Concomitant]
     Active Substance: DICLOFENAC
  22. PRAVASTATIN [Concomitant]
     Active Substance: PRAVASTATIN
  23. PROCHLORPER [Concomitant]
  24. SODIUM CHLORIDE [Concomitant]
     Active Substance: SODIUM CHLORIDE
  25. MEGESTROL [Concomitant]
     Active Substance: MEGESTROL

REACTIONS (4)
  - Abdominal discomfort [Not Recovered/Not Resolved]
  - Diarrhoea [Not Recovered/Not Resolved]
  - Dizziness [Not Recovered/Not Resolved]
  - Somnolence [Not Recovered/Not Resolved]

NARRATIVE: CASE EVENT DATE: 20200620
